FAERS Safety Report 8918817 (Version 2)
Quarter: 2012Q4

REPORT INFORMATION
  Report Type: 
  Country: US (occurrence: US)
  Receive Date: 20121120
  Receipt Date: 20121220
  Transmission Date: 20130627
  Serious: Yes (Hospitalization)
  Sender: FDA-Public Use
  Company Number: US-GILEAD-2012-0063282

PATIENT
  Sex: Female

DRUGS (4)
  1. LETAIRIS [Suspect]
     Indication: PULMONARY ARTERIAL HYPERTENSION
     Dosage: 5 mg, QD
     Route: 048
     Dates: start: 20110805
  2. REVATIO [Suspect]
     Indication: PULMONARY HYPERTENSION
     Dosage: UNK
  3. COUMADIN                           /00014802/ [Suspect]
     Indication: PRODUCT USED FOR UNKNOWN INDICATION
     Dosage: UNK
     Dates: end: 201210
  4. COUMADIN                           /00014802/ [Suspect]
     Dosage: UNK
     Dates: start: 201210

REACTIONS (1)
  - Pneumonia [Unknown]
